FAERS Safety Report 7522728-7 (Version None)
Quarter: 2011Q2

REPORT INFORMATION
  Report Type: 
  Country: None (occurrence: None)
  Receive Date: 20110603
  Receipt Date: 20110530
  Transmission Date: 20111010
  Serious: No
  Sender: FDA-Public Use
  Company Number: BR-PFIZER INC-2011083197

PATIENT
  Age: 63 Year
  Sex: Female
  Weight: 60 kg

DRUGS (5)
  1. VARENICLINE TARTRATE [Suspect]
     Indication: SMOKING CESSATION THERAPY
     Dosage: UNK
     Route: 048
     Dates: start: 20110403
  2. METOPROLOL SUCCINATE [Concomitant]
     Indication: ARRHYTHMIA
     Dosage: IN THE MORNING ONE HOUR BEFORE VARENICLINE
  3. VYTORIN [Concomitant]
     Indication: BLOOD CHOLESTEROL INCREASED
     Dosage: UNK
  4. EUTHYROX [Concomitant]
     Indication: THYROID DISORDER
     Dosage: IN THE MORNING
  5. CLONAZEPAM [Concomitant]
     Dosage: 1 MG, 1X/DAY, BEFORE SLEEPING

REACTIONS (5)
  - NAUSEA [None]
  - DYSPEPSIA [None]
  - WEIGHT INCREASED [None]
  - BODY HEIGHT DECREASED [None]
  - ABDOMINAL DISCOMFORT [None]
